FAERS Safety Report 9313104 (Version 1)
Quarter: 2013Q2

REPORT INFORMATION
  Report Type: Spontaneous
  Country: US (occurrence: US)
  Receive Date: 20130528
  Receipt Date: 20130528
  Transmission Date: 20140414
  Serious: No
  Sender: FDA-Public Use
  Company Number: US-ABBOTT-13P-163-1065077-00

PATIENT
  Sex: Male

DRUGS (3)
  1. ANDROGEL [Suspect]
     Indication: PRODUCT USED FOR UNKNOWN INDICATION
     Dosage: 2 PUMPS DAILY
  2. VIAGRA [Concomitant]
     Indication: PRODUCT USED FOR UNKNOWN INDICATION
  3. TESIM [Concomitant]
     Dosage: 1 TUBE DAILY AS DIRECTED

REACTIONS (7)
  - Erectile dysfunction [Unknown]
  - Prostatic specific antigen increased [Unknown]
  - Application site irritation [Unknown]
  - Acne [Unknown]
  - Libido decreased [Unknown]
  - Organic erectile dysfunction [Unknown]
  - Drug effect incomplete [Unknown]
